FAERS Safety Report 4362261-7 (Version None)
Quarter: 2004Q2

REPORT INFORMATION
  Report Type: 
  Country: None (occurrence: None)
  Receive Date: 20040517
  Receipt Date: 20040226
  Transmission Date: 20050107
  Serious: Yes (Other)
  Sender: FDA-Public Use
  Company Number: MEDI-0001512

PATIENT
  Age: 60 Year
  Sex: Male

DRUGS (5)
  1. ETHYOL [Suspect]
     Indication: RADIOTHERAPY
     Dosage: 250 MG, 2 IN 1 D, SUBCUTANEOUS
     Route: 058
     Dates: start: 20031229, end: 20040206
  2. RADIATION THERAPY [Concomitant]
  3. VOGALENE (METOPIMAZINE) [Concomitant]
  4. ZOPHREN (ONDANSETRON HYDROCHLORIDE) [Concomitant]
  5. PREDNISOLONE [Concomitant]

REACTIONS (2)
  - ERYTHEMA [None]
  - PRURITUS [None]
